FAERS Safety Report 21918686 (Version 2)
Quarter: 2023Q1

REPORT INFORMATION
  Report Type: Spontaneous
  Country: CN (occurrence: None)
  Receive Date: 20230127
  Receipt Date: 20230130
  Transmission Date: 20230418
  Serious: Yes (Other)
  Sender: FDA-Public Use
  Company Number: 2023A020725

PATIENT
  Age: 26436 Day
  Sex: Female

DRUGS (5)
  1. PULMICORT TURBUHALER [Suspect]
     Active Substance: BUDESONIDE
     Indication: Muscle spasms
     Route: 055
     Dates: start: 20230114, end: 20230114
  2. PULMICORT TURBUHALER [Suspect]
     Active Substance: BUDESONIDE
     Indication: Dyspnoea
     Route: 055
     Dates: start: 20230114, end: 20230114
  3. BRICANYL [Suspect]
     Active Substance: TERBUTALINE SULFATE
     Indication: Muscle spasms
     Route: 055
     Dates: start: 20230114, end: 20230114
  4. BRICANYL [Suspect]
     Active Substance: TERBUTALINE SULFATE
     Indication: Dyspnoea
     Route: 055
     Dates: start: 20230114, end: 20230114
  5. SODIUM CHLORIDE [Concomitant]
     Active Substance: SODIUM CHLORIDE
     Indication: Vehicle solution use
     Route: 065
     Dates: start: 20230114, end: 20230114

REACTIONS (4)
  - Chest discomfort [Recovering/Resolving]
  - Tachypnoea [Recovering/Resolving]
  - Muscle spasms [Recovering/Resolving]
  - Asthenia [Recovering/Resolving]

NARRATIVE: CASE EVENT DATE: 20230114
